FAERS Safety Report 7682711-8 (Version None)
Quarter: 2011Q3

REPORT INFORMATION
  Report Type: 
  Country: None (occurrence: None)
  Receive Date: 20110815
  Receipt Date: 20110804
  Transmission Date: 20111222
  Serious: Yes (Hospitalization)
  Sender: FDA-Public Use
  Company Number: CA-JNJFOC-20110605321

PATIENT
  Sex: Male
  Weight: 54 kg

DRUGS (2)
  1. ANALGESIC [Concomitant]
     Indication: PAIN
     Route: 048
  2. REMICADE [Suspect]
     Indication: RHEUMATOID ARTHRITIS
     Route: 042
     Dates: start: 20060101

REACTIONS (1)
  - ARTERIAL OCCLUSIVE DISEASE [None]
